FAERS Safety Report 15818754 (Version 3)
Quarter: 2019Q1

REPORT INFORMATION
  Report Type: Report from Study
  Country: None (occurrence: CO)
  Receive Date: 20190113
  Receipt Date: 20190214
  Transmission Date: 20190417
  Serious: Yes (Hospitalization)
  Sender: FDA-Public Use
  Company Number: CO-ABBVIE-19K-036-2622714-00

PATIENT
  Age: 40 Year
  Sex: Female
  Weight: 58 kg

DRUGS (1)
  1. HUMIRA [Suspect]
     Active Substance: ADALIMUMAB
     Indication: HIDRADENITIS
     Route: 058
     Dates: start: 20170830, end: 201811

REACTIONS (9)
  - Injection site swelling [Recovered/Resolved]
  - Injection site pruritus [Recovered/Resolved]
  - Injection site pruritus [Recovered/Resolved]
  - Injection site swelling [Recovered/Resolved]
  - Inflammation [Recovered/Resolved]
  - Vaginal cellulitis [Recovered/Resolved]
  - Cellulitis [Recovered/Resolved]
  - Vulvovaginal mycotic infection [Unknown]
  - Smear cervix abnormal [Recovering/Resolving]

NARRATIVE: CASE EVENT DATE: 201809
